FAERS Safety Report 10038599 (Version 1)
Quarter: 2014Q1

REPORT INFORMATION
  Report Type: Spontaneous
  Country: US (occurrence: None)
  Receive Date: 20140306
  Receipt Date: 20140306
  Transmission Date: 20141002
  Serious: Yes (Other)
  Sender: FDA-Public Use
  Company Number: 163-21880-13064526

PATIENT
  Age: 80 Year
  Sex: Male
  Weight: 81.6 kg

DRUGS (11)
  1. REVLIMID (LENALIDOMIDE) (25 MILLIGRAM, CAPSULES) [Suspect]
     Indication: PLASMA CELL MYELOMA
     Dosage: 21 IN 28 D
     Route: 048
     Dates: start: 201301
  2. ZOMETA (ZOLEDRONIC ACID) [Concomitant]
  3. SIMVASTATIN (SIMVASTATIN) [Concomitant]
  4. SERTRALINE HCL (SERTRALINE HYDROCHLORIDE) [Concomitant]
  5. MORPHINE SULFATE [Concomitant]
  6. FUROSEMIDE [Concomitant]
  7. POTASSIUM CHLORIDE [Concomitant]
  8. CHLORHEXIDINE [Concomitant]
  9. WARFARIN SODIUM [Concomitant]
  10. LIDODERM (LIDOCAINE) [Concomitant]
  11. ATENOLOL [Concomitant]

REACTIONS (1)
  - Thrombosis [None]
